FAERS Safety Report 8936330 (Version 3)
Quarter: 2014Q1

REPORT INFORMATION
  Report Type: Report from Study
  Country: JP (occurrence: JP)
  Receive Date: 20121130
  Receipt Date: 20140127
  Transmission Date: 20141002
  Serious: Yes (Hospitalization)
  Sender: FDA-Public Use
  Company Number: JP-VERTEX PHARMACEUTICAL INC.-AE-2012-001801

PATIENT
  Age: 63 Year
  Sex: Female

DRUGS (15)
  1. VX-950 (TELAPREVIR) [Suspect]
     Indication: CHRONIC HEPATITIS C
     Dosage: 2250 MG, QD
     Route: 048
     Dates: start: 20111209
  2. PEGINTRON [Suspect]
     Indication: CHRONIC HEPATITIS C
     Dosage: 80 ?G, QW
     Route: 058
     Dates: start: 20111209
  3. REBETOL [Suspect]
     Indication: CHRONIC HEPATITIS C
     Dosage: 600 MG, QD
     Route: 048
     Dates: start: 20111209, end: 20111229
  4. REBETOL [Suspect]
     Dosage: 400 MG, QOD
     Route: 048
     Dates: start: 20111230, end: 20120105
  5. REBETOL [Suspect]
     Dosage: 600 MG, QOD
     Route: 048
     Dates: start: 20111231, end: 20120106
  6. REBETOL [Suspect]
     Dosage: 400 MG, QD
     Route: 048
     Dates: start: 20120107
  7. REBETOL [Suspect]
     Dosage: 400 MG, QOD
     Route: 048
     Dates: start: 20120203
  8. REBETOL [Suspect]
     Dosage: 200 MG, QOD
     Route: 048
     Dates: start: 20120204
  9. REBETOL [Suspect]
     Dosage: 200 MG, QD
     Route: 048
     Dates: start: 20120217, end: 20120305
  10. REBETOL [Suspect]
     Dosage: 200 MG, QD
     Route: 048
     Dates: start: 20120330
  11. REBETOL [Suspect]
     Dosage: 400 MG, QD
     Route: 048
     Dates: start: 20120406
  12. REBETOL [Suspect]
     Dosage: 600 MG, QD
     Route: 048
     Dates: start: 20120427, end: 20120525
  13. PARIET [Concomitant]
     Dosage: 10 MG, QD
     Route: 048
     Dates: start: 20111212
  14. ALLEGRA [Concomitant]
     Dosage: 120 MG, QD
     Route: 048
     Dates: start: 20111216
  15. MAGLAX [Concomitant]
     Dosage: 990 MG, QD
     Route: 048

REACTIONS (1)
  - Constipation [Recovered/Resolved]
